FAERS Safety Report 8530101-8 (Version None)
Quarter: 2012Q3

REPORT INFORMATION
  Report Type: 
  Country: None (occurrence: None)
  Receive Date: 20120723
  Receipt Date: 20120719
  Transmission Date: 20120928
  Serious: Yes (Other)
  Sender: FDA-Public Use
  Company Number: PHEH2011US00500

PATIENT
  Sex: Female

DRUGS (10)
  1. PERPHENAZINE [Concomitant]
  2. ZOMETA [Suspect]
     Indication: MULTIPLE MYELOMA
     Route: 042
  3. PANTOPRAZOLE [Concomitant]
  4. CALCIUM [Concomitant]
  5. PREMARIN [Concomitant]
  6. DEXAMETHASON ^COPHAR^ [Concomitant]
  7. REVLIMID [Concomitant]
  8. AREDIA [Suspect]
     Route: 042
  9. LOVAZA [Concomitant]
  10. ZETIA [Concomitant]

REACTIONS (22)
  - EMOTIONAL DISTRESS [None]
  - CARDIOMEGALY [None]
  - OSTEONECROSIS OF JAW [None]
  - BRONCHITIS [None]
  - DEFORMITY [None]
  - SENSITIVITY OF TEETH [None]
  - EXPOSED BONE IN JAW [None]
  - GINGIVAL BLEEDING [None]
  - OSTEOMYELITIS [None]
  - SWELLING [None]
  - PAIN [None]
  - INFECTION [None]
  - INJURY [None]
  - RIB FRACTURE [None]
  - BACK PAIN [None]
  - ARTHRALGIA [None]
  - MULTIPLE MYELOMA [None]
  - TOOTHACHE [None]
  - LOOSE TOOTH [None]
  - SPINAL COMPRESSION FRACTURE [None]
  - INTERVERTEBRAL DISC PROTRUSION [None]
  - BREAST CYST [None]
